FAERS Safety Report 16137671 (Version 1)
Quarter: 2019Q1

REPORT INFORMATION
  Report Type: Spontaneous
  Country: DE (occurrence: DE)
  Receive Date: 20190330
  Receipt Date: 20190330
  Transmission Date: 20190418
  Serious: Yes (Hospitalization)
  Sender: FDA-Public Use
  Company Number: DE-AUROBINDO-AUR-APL-2019-016629

PATIENT

DRUGS (4)
  1. FOLINIC ACID SOLUTION FOR INJECTION [Suspect]
     Active Substance: LEUCOVORIN
     Indication: RECTAL CANCER
     Dosage: 760 MILLIGRAM, CYCLICAL (760 MG, QCY)
     Route: 042
     Dates: start: 20190306
  2. OXALIPLATIN CONCENTRATE FOR SOLUTION FOR INFUSION [Suspect]
     Active Substance: OXALIPLATIN
     Indication: RECTAL CANCER
     Dosage: 180 MILLIGRAM, CYCLICAL (180 MG, QCY)
     Route: 042
     Dates: start: 20190306
  3. AFLIBERCEPT [Suspect]
     Active Substance: AFLIBERCEPT
     Indication: RECTAL CANCER
     Dosage: 372 MILLIGRAM, CYCLICAL (372 MG, QCY)
     Route: 042
     Dates: start: 20190306
  4. FLUOROURACIL. [Suspect]
     Active Substance: FLUOROURACIL
     Indication: RECTAL CANCER
     Dosage: 6080 MILLIGRAM, CYCLICAL (6080 MG, QCY)
     Route: 042
     Dates: start: 20190306

REACTIONS (1)
  - Chills [Recovered/Resolved]

NARRATIVE: CASE EVENT DATE: 20190308
